FAERS Safety Report 8603481-2 (Version None)
Quarter: 2012Q3

REPORT INFORMATION
  Report Type: 
  Country: None (occurrence: None)
  Receive Date: 20120817
  Receipt Date: 20120810
  Transmission Date: 20120928
  Serious: Yes (Other)
  Sender: FDA-Public Use
  Company Number: CHPA2012US017989

PATIENT
  Age: 70 Year
  Sex: Male

DRUGS (2)
  1. COMTREX DAY/NIGHT SEVERE COLD+SINUS [Suspect]
     Indication: SINUS DISORDER
     Dosage: UNK, UNK
     Route: 048
     Dates: start: 19700101
  2. ZYRTEC [Suspect]
     Dosage: UNK, UNK
     Route: 048

REACTIONS (4)
  - DIABETES MELLITUS [None]
  - HYPERTENSION [None]
  - OFF LABEL USE [None]
  - RENAL DISORDER [None]
